FAERS Safety Report 20462462 (Version 2)
Quarter: 2022Q1

REPORT INFORMATION
  Report Type: Report from Study
  Country: US (occurrence: US)
  Receive Date: 20220211
  Receipt Date: 20220217
  Transmission Date: 20220423
  Serious: No
  Sender: FDA-Public Use
  Company Number: US-NOVARTISTESTPH-NVSC2022US029973

PATIENT
  Age: 79 Year
  Sex: Male

DRUGS (1)
  1. ENTRESTO [Suspect]
     Active Substance: SACUBITRIL\VALSARTAN
     Indication: Product used for unknown indication
     Dosage: UNK UNK, BID, (24/26 MG, 12/13 MG)
     Route: 048
     Dates: start: 20211001

REACTIONS (6)
  - Polyuria [Recovering/Resolving]
  - Wrong technique in product usage process [Recovering/Resolving]
  - Nocturia [Recovering/Resolving]
  - Swelling [Recovered/Resolved]
  - Fluid retention [Recovered/Resolved]
  - Peripheral swelling [Recovered/Resolved]

NARRATIVE: CASE EVENT DATE: 20220213
